FAERS Safety Report 7103373-4 (Version None)
Quarter: 2010Q4

REPORT INFORMATION
  Report Type: 
  Country: None (occurrence: None)
  Receive Date: 20101115
  Receipt Date: 20090729
  Transmission Date: 20110411
  Serious: No
  Sender: FDA-Public Use
  Company Number: US-KINGPHARMUSA00001-K200900906

PATIENT
  Sex: Female
  Weight: 40.816 kg

DRUGS (2)
  1. LEVOXYL [Suspect]
     Indication: HYPOTHYROIDISM
     Dosage: 50 MCG, QD
     Route: 048
     Dates: start: 19990101, end: 20090719
  2. VITAMINS [Concomitant]
     Dosage: UNK

REACTIONS (9)
  - ARTHRALGIA [None]
  - ASTHENIA [None]
  - BALANCE DISORDER [None]
  - BLOOD PRESSURE FLUCTUATION [None]
  - DYSSTASIA [None]
  - HYPOAESTHESIA [None]
  - PERIPHERAL COLDNESS [None]
  - WEIGHT DECREASED [None]
  - WRIST FRACTURE [None]
